FAERS Safety Report 17609322 (Version 2)
Quarter: 2020Q4

REPORT INFORMATION
  Report Type: Spontaneous
  Country: US (occurrence: US)
  Receive Date: 20200401
  Receipt Date: 20201002
  Transmission Date: 20210113
  Serious: Yes (Other)
  Sender: FDA-Public Use
  Company Number: US-SPECGX-T202000620

PATIENT
  Sex: Male

DRUGS (2)
  1. PAMELOR [Suspect]
     Active Substance: NORTRIPTYLINE HYDROCHLORIDE
     Dosage: UNK (CRUSHED TABLET)
     Route: 048
  2. PAMELOR [Suspect]
     Active Substance: NORTRIPTYLINE HYDROCHLORIDE
     Indication: NEUROPATHY PERIPHERAL
     Dosage: UNK
     Route: 048

REACTIONS (14)
  - Oesophagitis [Unknown]
  - Hypoaesthesia [Unknown]
  - Gastritis [Unknown]
  - Throat irritation [Unknown]
  - Dyspepsia [Unknown]
  - Dysphagia [Unknown]
  - Hiatus hernia [Unknown]
  - Wrong technique in product usage process [Unknown]
  - Oesophageal ulcer [Unknown]
  - Scar [Unknown]
  - Aphonia [Unknown]
  - Back disorder [Unknown]
  - Product use in unapproved indication [Unknown]
  - Reflux laryngitis [Unknown]
